FAERS Safety Report 15059878 (Version 1)
Quarter: 2018Q2

REPORT INFORMATION
  Report Type: Spontaneous
  Country: US (occurrence: US)
  Receive Date: 20180605
  Receipt Date: 20180605
  Transmission Date: 20180711
  Serious: Yes (Other)
  Sender: FDA-Public Use
  Company Number: None

PATIENT
  Age: 8 Year
  Sex: Female
  Weight: 50.85 kg

DRUGS (1)
  1. COPPERTONE KIDS SPF 50 SPRAY [Suspect]
     Active Substance: AVOBENZONE\HOMOSALATE\OCTISALATE\OCTOCRYLENE\OXYBENZONE
     Indication: PROPHYLAXIS AGAINST SOLAR RADIATION
     Dosage: ?          OTHER FREQUENCY:1 TIME EVERY 80 MI;?
     Route: 061
     Dates: start: 20180528, end: 20180528

REACTIONS (4)
  - Product quality issue [None]
  - Educational problem [None]
  - Application site burn [None]
  - Application site vesicles [None]

NARRATIVE: CASE EVENT DATE: 20180528
